FAERS Safety Report 7209071-0 (Version None)
Quarter: 2010Q4

REPORT INFORMATION
  Report Type: 
  Country: None (occurrence: None)
  Receive Date: 20101222
  Receipt Date: 20100929
  Transmission Date: 20110411
  Serious: Yes (Hospitalization, Other)
  Sender: FDA-Public Use
  Company Number: GB-ACCORD-006310

PATIENT
  Age: 62 Year
  Sex: Female

DRUGS (7)
  1. SIMVASTATIN [Suspect]
     Indication: HYPERCHOLESTEROLAEMIA
     Dosage: 40.00-MG/ORAL
     Route: 048
     Dates: start: 19980129, end: 20100915
  2. FUSIDIC ACID [Suspect]
     Indication: OSTEOMYELITIS
     Dosage: 500.00-MG/ORAL
     Route: 048
     Dates: start: 20100819, end: 20100915
  3. FLOXACILLIN SODIUM [Concomitant]
  4. INDOMETHACIN [Concomitant]
  5. OMEPRAZOLE [Concomitant]
  6. ACETAMINOPHEN [Concomitant]
  7. TRAMADOL HCL [Concomitant]

REACTIONS (7)
  - ALANINE AMINOTRANSFERASE INCREASED [None]
  - BLOOD ALKALINE PHOSPHATASE INCREASED [None]
  - BLOOD BILIRUBIN INCREASED [None]
  - DRUG INTERACTION [None]
  - MUSCULAR WEAKNESS [None]
  - MYOSITIS [None]
  - PAIN IN EXTREMITY [None]
